FAERS Safety Report 6652463-9 (Version None)
Quarter: 2010Q1

REPORT INFORMATION
  Report Type: 
  Country: None (occurrence: None)
  Receive Date: 20100323
  Receipt Date: 20100305
  Transmission Date: 20100710
  Serious: Yes (Hospitalization)
  Sender: FDA-Public Use
  Company Number: 2010-00312

PATIENT
  Age: 6 Decade
  Sex: Female
  Weight: 45 kg

DRUGS (6)
  1. RAMIPRIL [Suspect]
     Indication: DRUG USE FOR UNKNOWN INDICATION
     Dosage: 1.25 MG (2 IN 1 D), ORAL 1.25 MG (1 IN 1 D), ORAL
     Route: 048
     Dates: start: 20090925, end: 20091005
  2. RAMIPRIL [Suspect]
     Indication: DRUG USE FOR UNKNOWN INDICATION
     Dosage: 1.25 MG (2 IN 1 D), ORAL 1.25 MG (1 IN 1 D), ORAL
     Route: 048
     Dates: start: 20091005, end: 20091105
  3. PREDNISOLONE [Concomitant]
  4. SERETIDE  SALMETEROL XINAFOATE MICRONISED /FLUTICASONE PROPIONATE [Concomitant]
  5. SPIRIVA  ( TIOTROPIUM BROMIDE + TIOTROPIUM BROMIDE MONOHYDRATE) [Concomitant]
  6. VENTOLIN         SALBUTAMOL + SALBUTAMOL BASE + SALBUTAMOL SULPHATE+ [Concomitant]

REACTIONS (1)
  - CHRONIC OBSTRUCTIVE PULMONARY DISEASE [None]
